FAERS Safety Report 6844953-0 (Version None)
Quarter: 2010Q3

REPORT INFORMATION
  Report Type: 
  Country: None (occurrence: None)
  Receive Date: 20100713
  Receipt Date: 20100701
  Transmission Date: 20110219
  Serious: Yes (Disabling, Other)
  Sender: FDA-Public Use
  Company Number: ACO_01296_2010

PATIENT
  Age: 53 Year
  Sex: Female
  Weight: 54.4316 kg

DRUGS (2)
  1. AMPYRA [Suspect]
     Indication: GAIT DISTURBANCE
     Dosage: (10 MG BID ORAL)
     Route: 048
     Dates: start: 20100623, end: 20100701
  2. VITAMIN D3 [Concomitant]

REACTIONS (9)
  - ABASIA [None]
  - ASTHENIA [None]
  - CHEST DISCOMFORT [None]
  - INSOMNIA [None]
  - MICTURITION FREQUENCY DECREASED [None]
  - MOVEMENT DISORDER [None]
  - OROPHARYNGEAL PAIN [None]
  - RHINORRHOEA [None]
  - VERTIGO [None]
